FAERS Safety Report 6173358-3 (Version None)
Quarter: 2009Q2

REPORT INFORMATION
  Report Type: 
  Country: None (occurrence: None)
  Receive Date: 20090428
  Receipt Date: 20090417
  Transmission Date: 20091009
  Serious: Yes (Hospitalization)
  Sender: FDA-Public Use
  Company Number: GXKR2009JP04800

PATIENT
  Age: 69 Year
  Sex: Female

DRUGS (3)
  1. AMANTADINE HCL [Suspect]
     Indication: CEREBRAL INFARCTION
     Dosage: 100 MG, BID, ORAL
     Route: 048
  2. TICLOPIDINE HCL [Concomitant]
  3. VALSARTAN [Concomitant]

REACTIONS (7)
  - BLADDER DISTENSION [None]
  - CONVULSION [None]
  - DEHYDRATION [None]
  - DRUG TOXICITY [None]
  - HAEMODIALYSIS [None]
  - HYDRONEPHROSIS [None]
  - RENAL FAILURE ACUTE [None]
